FAERS Safety Report 10103720 (Version 1)
Quarter: 2014Q2

REPORT INFORMATION
  Report Type: Spontaneous
  Country: IN (occurrence: IN)
  Receive Date: 20140424
  Receipt Date: 20140424
  Transmission Date: 20141212
  Serious: Yes (Other)
  Sender: FDA-Public Use
  Company Number: IN-BAXTER-2014BAX019944

PATIENT
  Age: 45 Year
  Sex: Female
  Weight: 40 kg

DRUGS (7)
  1. ISOFLURANE [Suspect]
     Indication: MAINTENANCE OF ANAESTHESIA
     Route: 065
  2. MIDAZOLAM [Suspect]
     Indication: PREMEDICATION
     Route: 065
  3. FENTANYL [Suspect]
     Indication: PREMEDICATION
     Route: 065
  4. PROPOFOL [Suspect]
     Indication: INDUCTION OF ANAESTHESIA
     Route: 065
  5. VECURONIUM [Suspect]
     Indication: INDUCTION OF ANAESTHESIA
     Route: 065
  6. OXYGEN [Concomitant]
     Indication: MAINTENANCE OF ANAESTHESIA
     Route: 065
  7. NITROUS OXIDE [Concomitant]
     Indication: MAINTENANCE OF ANAESTHESIA
     Route: 065

REACTIONS (2)
  - Thyrotoxic crisis [Recovering/Resolving]
  - Delayed recovery from anaesthesia [Recovered/Resolved]
